FAERS Safety Report 25750744 (Version 2)
Quarter: 2025Q3

REPORT INFORMATION
  Report Type: Spontaneous
  Country: AU (occurrence: AU)
  Receive Date: 20250902
  Receipt Date: 20250930
  Transmission Date: 20251020
  Serious: Yes (Hospitalization, Other)
  Sender: MYLAN
  Company Number: AU-MYLANLABS-2025M1074333

PATIENT
  Age: 27 Year
  Sex: Male

DRUGS (1)
  1. CLOZARIL [Suspect]
     Active Substance: CLOZAPINE
     Indication: Schizophrenia
     Dates: start: 20250807, end: 20250827

REACTIONS (3)
  - C-reactive protein increased [Recovered/Resolved]
  - Troponin increased [Recovered/Resolved]
  - Myocarditis [Unknown]

NARRATIVE: CASE EVENT DATE: 20250801
